FAERS Safety Report 6519270-9 (Version None)
Quarter: 2009Q4

REPORT INFORMATION
  Report Type: 
  Country: None (occurrence: None)
  Receive Date: 20091228
  Receipt Date: 20091222
  Transmission Date: 20100525
  Serious: Yes (Death, Life-Threatening, Hospitalization, Disabling, Other)
  Sender: FDA-Public Use
  Company Number: PHHY2009JP45401

PATIENT
  Age: 66 Year
  Sex: Female

DRUGS (13)
  1. NEORAL [Suspect]
     Indication: INTERSTITIAL LUNG DISEASE
     Dosage: 25 MG, TID
     Route: 048
     Dates: start: 20090123
  2. NEORAL [Suspect]
     Dosage: 75 MG, QD
     Dates: start: 20090804
  3. NEORAL [Suspect]
     Dosage: 25 MG, TID
     Dates: start: 20090904, end: 20091111
  4. BONALON [Concomitant]
     Indication: OSTEOPOROSIS
     Dosage: 35 MG, UNK
     Route: 048
     Dates: start: 20081201, end: 20091023
  5. MYSLEE [Concomitant]
     Indication: INSOMNIA
     Dosage: 5 MG, UNK
     Route: 048
     Dates: start: 20091011
  6. VESICARE [Concomitant]
     Indication: NEUROGENIC BLADDER
     Dosage: 10 MG, UNK
     Route: 048
     Dates: start: 20090924, end: 20091019
  7. LANIRAPID [Concomitant]
     Indication: CARDIAC FAILURE
     Dosage: 0.05 MG, UNK
     Route: 048
     Dates: start: 20091001, end: 20091016
  8. DORAL [Concomitant]
     Indication: INSOMNIA
     Dosage: 10 MG, UNK
     Route: 048
     Dates: start: 20091008, end: 20091013
  9. ETHYL LOFLAZEPATE [Concomitant]
     Indication: ANXIETY DISORDER
     Dosage: 0.5 MG, UNK
     Route: 048
     Dates: start: 20091008, end: 20091013
  10. LUVOX [Concomitant]
     Indication: DEPRESSION
     Dosage: 50 MG, UNK
     Route: 048
     Dates: start: 20091008, end: 20091013
  11. PREDONINE [Concomitant]
     Indication: INTERSTITIAL LUNG DISEASE
     Dosage: 17.5 MG, UNK
     Route: 048
     Dates: start: 20081201, end: 20091121
  12. TAKEPRON [Concomitant]
     Indication: GASTRIC ULCER
     Dosage: 30 MG, UNK
     Route: 048
     Dates: start: 20081201, end: 20091121
  13. BAKTAR [Concomitant]
     Indication: ANTIFUNGAL PROPHYLAXIS
     Dosage: 1 DF, UNK
     Dates: start: 20081201, end: 20091121

REACTIONS (14)
  - ANXIETY [None]
  - CARDIO-RESPIRATORY ARREST [None]
  - DELIRIUM [None]
  - DEMENTIA [None]
  - DEPRESSED LEVEL OF CONSCIOUSNESS [None]
  - DEPRESSION [None]
  - DISORIENTATION [None]
  - DIZZINESS [None]
  - HYPOGLYCAEMIA [None]
  - HYPOXIA [None]
  - INTERSTITIAL LUNG DISEASE [None]
  - LOSS OF CONSCIOUSNESS [None]
  - MECHANICAL VENTILATION [None]
  - RESPIRATORY FAILURE [None]
